FAERS Safety Report 10239285 (Version 1)
Quarter: 2014Q2

REPORT INFORMATION
  Report Type: Spontaneous
  Country: US (occurrence: US)
  Receive Date: 20140616
  Receipt Date: 20140616
  Transmission Date: 20141212
  Serious: Yes (Other)
  Sender: FDA-Public Use
  Company Number: US-BAYER-2014-087038

PATIENT
  Age: 21 Year
  Sex: Female

DRUGS (1)
  1. MIRENA [Suspect]
     Indication: CONTRACEPTION
     Dosage: 20 ?G/D, CONT
     Route: 015
     Dates: start: 20140529

REACTIONS (5)
  - Post procedural haemorrhage [None]
  - Procedural pain [None]
  - Medication error [Not Recovered/Not Resolved]
  - Device issue [None]
  - Abdominal pain lower [None]
